FAERS Safety Report 25208244 (Version 1)
Quarter: 2025Q2

REPORT INFORMATION
  Report Type: Spontaneous
  Country: US (occurrence: US)
  Receive Date: 20250417
  Receipt Date: 20250417
  Transmission Date: 20250717
  Serious: Yes (Hospitalization, Other)
  Sender: CHEPLAPHARM
  Company Number: US-ROCHE-3133656

PATIENT
  Sex: Male

DRUGS (3)
  1. VALGANCICLOVIR [Suspect]
     Active Substance: VALGANCICLOVIR
     Indication: Heart transplant
  2. CELLCEPT [Suspect]
     Active Substance: MYCOPHENOLATE MOFETIL
     Indication: Heart transplant
     Dosage: 500 MG, 2 TABLET, TWICE A DAY
  3. CELLCEPT [Suspect]
     Active Substance: MYCOPHENOLATE MOFETIL
     Indication: Heart transplant
     Dosage: 500 MG 3 TABLETS BID

REACTIONS (3)
  - Diabetes mellitus [Unknown]
  - Illness [Unknown]
  - Malaise [Unknown]
